FAERS Safety Report 17742632 (Version 1)
Quarter: 2020Q2

REPORT INFORMATION
  Report Type: Spontaneous
  Country: DE (occurrence: DE)
  Receive Date: 20200504
  Receipt Date: 20200504
  Transmission Date: 20200714
  Serious: Yes (Hospitalization)
  Sender: FDA-Public Use
  Company Number: DE-JNJFOC-20200430579

PATIENT
  Age: 15 Year
  Sex: Male
  Weight: 93 kg

DRUGS (2)
  1. CETIRIZINE HYDROCHLORIDE. [Suspect]
     Active Substance: CETIRIZINE HYDROCHLORIDE
     Indication: URTICARIA
     Dosage: UP 5 X 1 TABLET PER DAY (PATIENT^S DOSE SELECTION), DRUG ADDITIONAL INFO: OVERDOSE
     Route: 048
     Dates: start: 20190826, end: 201909
  2. IBUPROFEN. [Concomitant]
     Active Substance: IBUPROFEN
     Indication: HEADACHE
     Dosage: 1 TABLET WHEN NEEDED
     Route: 048

REACTIONS (2)
  - Tic [Not Recovered/Not Resolved]
  - Overdose [Unknown]

NARRATIVE: CASE EVENT DATE: 20190921
